FAERS Safety Report 11631095 (Version 7)
Quarter: 2018Q4

REPORT INFORMATION
  Report Type: Spontaneous
  Country: US (occurrence: US)
  Receive Date: 20151014
  Receipt Date: 20181211
  Transmission Date: 20190204
  Serious: No
  Sender: FDA-Public Use
  Company Number: US-PFIZER INC-2015340731

PATIENT
  Age: 61 Year
  Sex: Male

DRUGS (3)
  1. EFFEXOR XR [Suspect]
     Active Substance: VENLAFAXINE HYDROCHLORIDE
     Indication: DEPRESSION
     Dosage: 150 MG, UNK
     Route: 048
  2. VIAGRA [Interacting]
     Active Substance: SILDENAFIL CITRATE
     Indication: ERECTILE DYSFUNCTION
     Dosage: UNK
  3. EFFEXOR XR [Interacting]
     Active Substance: VENLAFAXINE HYDROCHLORIDE
     Dosage: 225 MG, 1X/DAY AT NIGHT
     Route: 048

REACTIONS (7)
  - Erectile dysfunction [Unknown]
  - Withdrawal syndrome [Unknown]
  - Stress [Unknown]
  - Grief reaction [Unknown]
  - Drug interaction [Unknown]
  - Pain [Unknown]
  - Feeling abnormal [Unknown]
